FAERS Safety Report 24846735 (Version 2)
Quarter: 2025Q1

REPORT INFORMATION
  Report Type: Report from Study
  Country: ES (occurrence: ES)
  Receive Date: 20250115
  Receipt Date: 20250221
  Transmission Date: 20250409
  Serious: Yes (Hospitalization)
  Sender: ABBVIE
  Company Number: ES-ABBVIE-6069862

PATIENT
  Age: 48 Year
  Sex: Female

DRUGS (1)
  1. CARBIDOPA\LEVODOPA [Suspect]
     Active Substance: CARBIDOPA\LEVODOPA
     Indication: Parkinson^s disease
     Route: 058
     Dates: start: 20240209

REACTIONS (7)
  - Refusal of treatment by patient [Recovering/Resolving]
  - Psychotic disorder [Recovering/Resolving]
  - Cognitive disorder [Unknown]
  - Hallucination [Recovering/Resolving]
  - Suspiciousness [Recovering/Resolving]
  - Hospitalisation [Unknown]
  - Persecutory delusion [Recovering/Resolving]

NARRATIVE: CASE EVENT DATE: 20241227
